FAERS Safety Report 6819468-6 (Version None)
Quarter: 2010Q3

REPORT INFORMATION
  Report Type: 
  Country: None (occurrence: None)
  Receive Date: 20100707
  Receipt Date: 20100701
  Transmission Date: 20110219
  Serious: Yes (Death, Hospitalization)
  Sender: FDA-Public Use
  Company Number: US-PERRIGO-10US010977

PATIENT
  Age: 44 Year
  Sex: Female

DRUGS (3)
  1. ACETAMINOPHEN SLOW RELEASE [Suspect]
     Indication: MALAISE
     Dosage: 3 G, UNK
     Route: 048
  2. MERCURY [Suspect]
     Indication: PRODUCT USED FOR UNKNOWN INDICATION
     Dosage: UNKNOWN AMOUNT DAILY
     Route: 048
  3. IBUPROFEN [Concomitant]
     Indication: MALAISE
     Dosage: 800 MG, UNK
     Route: 048

REACTIONS (9)
  - ACUTE HEPATIC FAILURE [None]
  - BRAIN HERNIATION [None]
  - BRAIN OEDEMA [None]
  - DRUG TOXICITY [None]
  - HYPOTENSION [None]
  - POTENTIATING DRUG INTERACTION [None]
  - PYREXIA [None]
  - RENAL FAILURE ACUTE [None]
  - TACHYCARDIA [None]
